FAERS Safety Report 10934443 (Version 1)
Quarter: 2015Q1

REPORT INFORMATION
  Report Type: Spontaneous
  Country: US (occurrence: US)
  Receive Date: 20150320
  Receipt Date: 20150320
  Transmission Date: 20150721
  Serious: No
  Sender: FDA-Public Use
  Company Number: US-PFIZER INC-2015089837

PATIENT
  Sex: Male

DRUGS (1)
  1. ADVIL [Suspect]
     Active Substance: IBUPROFEN
     Dosage: UNK, THREE TIMES A DAY
     Dates: start: 201501

REACTIONS (3)
  - Decreased appetite [Unknown]
  - Insomnia [Unknown]
  - Gastric disorder [Unknown]

NARRATIVE: CASE EVENT DATE: 201503
